FAERS Safety Report 8739654 (Version 3)
Quarter: 2015Q1

REPORT INFORMATION
  Report Type: Report from Study
  Country: US (occurrence: US)
  Receive Date: 20120823
  Receipt Date: 20150327
  Transmission Date: 20150721
  Serious: Yes (Death)
  Sender: FDA-Public Use
  Company Number: US-ROCHE-1105792

PATIENT
  Age: 59 Year
  Sex: Male

DRUGS (25)
  1. RITUXAN [Suspect]
     Active Substance: RITUXIMAB
     Route: 042
     Dates: start: 20111228
  2. DILAUDID [Concomitant]
     Active Substance: HYDROMORPHONE HYDROCHLORIDE
     Indication: PAIN
  3. CIPROFLOXACIN. [Concomitant]
     Active Substance: CIPROFLOXACIN
  4. RITUXAN [Suspect]
     Active Substance: RITUXIMAB
     Indication: CHRONIC LYMPHOCYTIC LEUKAEMIA
     Route: 042
  5. SULFAMETHOXAZOLE/TRIMETHOPRIM [Suspect]
     Active Substance: SULFAMETHOXAZOLE\TRIMETHOPRIM
     Indication: PRODUCT USED FOR UNKNOWN INDICATION
     Route: 065
  6. BENDAMUSTINE [Concomitant]
     Active Substance: BENDAMUSTINE
  7. TACROLIMUS. [Concomitant]
     Active Substance: TACROLIMUS
  8. ACTIGALL [Concomitant]
     Active Substance: URSODIOL
  9. ANIDULAFUNGIN [Concomitant]
     Active Substance: ANIDULAFUNGIN
  10. ONDASETRON [Concomitant]
     Active Substance: ONDANSETRON
     Route: 042
  11. ACETAMINOPHEN. [Concomitant]
     Active Substance: ACETAMINOPHEN
     Route: 048
  12. CELLCEPT [Concomitant]
     Active Substance: MYCOPHENOLATE MOFETIL\MYCOPHENOLATE MOFETIL HYDROCHLORIDE
     Route: 065
  13. MICAFUNGIN [Concomitant]
     Active Substance: MICAFUNGIN
  14. FLAGYL [Concomitant]
     Active Substance: METRONIDAZOLE\METRONIDAZOLE HYDROCHLORIDE
  15. PENTOSTATIN. [Concomitant]
     Active Substance: PENTOSTATIN
     Route: 065
     Dates: start: 20120706
  16. ACYCLOVIR. [Concomitant]
     Active Substance: ACYCLOVIR
  17. METHYL PREDNISOLONE SODIUM SUCCINATE [Concomitant]
     Active Substance: METHYLPREDNISOLONE SODIUM SUCCINATE
     Route: 042
  18. LEVAQUIN [Concomitant]
     Active Substance: LEVOFLOXACIN
  19. LISINOPRIL. [Concomitant]
     Active Substance: LISINOPRIL
     Indication: HYPERTENSION
  20. PENTOSTATIN. [Concomitant]
     Active Substance: PENTOSTATIN
     Route: 065
     Dates: start: 20120713
  21. VORICONAZOLE. [Concomitant]
     Active Substance: VORICONAZOLE
  22. RITUXAN [Suspect]
     Active Substance: RITUXIMAB
     Route: 042
     Dates: start: 20120228
  23. FLUDARABINE PHOSPHATE. [Concomitant]
     Active Substance: FLUDARABINE PHOSPHATE
     Route: 042
  24. NEURONTIN [Concomitant]
     Active Substance: GABAPENTIN
     Indication: PAIN
  25. PENTAMIDINE [Concomitant]
     Active Substance: PENTAMIDINE

REACTIONS (2)
  - Graft versus host disease [Fatal]
  - Hypersensitivity [Unknown]

NARRATIVE: CASE EVENT DATE: 20120731
